FAERS Safety Report 14627151 (Version 1)
Quarter: 2018Q1

REPORT INFORMATION
  Report Type: Spontaneous
  Country: US (occurrence: US)
  Receive Date: 20180312
  Receipt Date: 20180312
  Transmission Date: 20180509
  Serious: Yes (Other)
  Sender: FDA-Public Use
  Company Number: US-MALLINCKRODT-T201800926

PATIENT
  Age: 60 Year
  Sex: Male

DRUGS (2)
  1. H.P. ACTHAR [Suspect]
     Active Substance: CORTICOTROPIN
     Indication: NEPHROTIC SYNDROME
  2. H.P. ACTHAR [Suspect]
     Active Substance: CORTICOTROPIN
     Indication: PROTEINURIA
     Dosage: 80 UNITS/ML,  TWICE A WEEK
     Route: 058

REACTIONS (6)
  - Road traffic accident [Unknown]
  - Blood pressure increased [Unknown]
  - Loss of consciousness [Unknown]
  - Limb injury [Unknown]
  - Blood glucose decreased [Unknown]
  - Joint injury [Unknown]

NARRATIVE: CASE EVENT DATE: 20180224
